FAERS Safety Report 9582029 (Version 1)
Quarter: 2013Q4

REPORT INFORMATION
  Report Type: Spontaneous
  Country: US (occurrence: US)
  Receive Date: 20131002
  Receipt Date: 20131002
  Transmission Date: 20140711
  Serious: No
  Sender: FDA-Public Use
  Company Number: US-AMGEN-USASP2012084240

PATIENT
  Sex: Male

DRUGS (6)
  1. ENBREL [Suspect]
     Indication: PSORIATIC ARTHROPATHY
     Dosage: 50 MG, 2 TIMES/WK
     Route: 058
  2. ASPIRIN [Concomitant]
     Dosage: 81 MG, UNK
  3. METFORMIN [Concomitant]
     Dosage: 1000 MG, UNK
  4. CRESTOR [Concomitant]
     Dosage: 10 MG, UNK
  5. PLAVIX [Concomitant]
     Dosage: 300 MG, UNK
  6. FISH OIL [Concomitant]
     Dosage: UNK

REACTIONS (1)
  - Therapeutic response decreased [Unknown]
